FAERS Safety Report 4582844-9 (Version None)
Quarter: 2005Q1

REPORT INFORMATION
  Report Type: 
  Country: None (occurrence: None)
  Receive Date: 20050215
  Receipt Date: 20041124
  Transmission Date: 20050727
  Serious: Yes (Life-Threatening, Hospitalization, Other)
  Sender: FDA-Public Use
  Company Number: FRWYE234725NOV04

PATIENT
  Sex: Female
  Weight: 64 kg

DRUGS (7)
  1. ENBREL [Suspect]
     Indication: RHEUMATOID ARTHRITIS
     Dosage: UNKNOWN
     Route: 058
     Dates: start: 20030926, end: 20041006
  2. PREDNISOLONE [Suspect]
     Dates: start: 19940831
  3. METFORMIN HCL [Concomitant]
  4. DAONIL [Concomitant]
  5. LASILIX [Concomitant]
  6. DETENSIEL [Concomitant]
  7. ATACAND [Concomitant]

REACTIONS (8)
  - ABDOMINAL PAIN [None]
  - KNEE ARTHROPLASTY [None]
  - LARGE INTESTINE PERFORATION [None]
  - PERITONITIS [None]
  - PNEUMOPERITONEUM [None]
  - POST PROCEDURAL COMPLICATION [None]
  - SEPTIC SHOCK [None]
  - SURGERY [None]
